FAERS Safety Report 14873038 (Version 2)
Quarter: 2018Q2

REPORT INFORMATION
  Report Type: Report from Study
  Country: US (occurrence: US)
  Receive Date: 20180510
  Receipt Date: 20180604
  Transmission Date: 20180711
  Serious: Yes (Hospitalization, Other)
  Sender: FDA-Public Use
  Company Number: US-AMGEN-USASL2018060907

PATIENT
  Age: 55 Year
  Sex: Male
  Weight: 60.1 kg

DRUGS (1)
  1. REPATHA [Suspect]
     Active Substance: EVOLOCUMAB
     Indication: HYPERCHOLESTEROLAEMIA
     Dosage: 140 MG, Q2WK
     Route: 023
     Dates: start: 20170808

REACTIONS (10)
  - Scleroderma [Unknown]
  - Intestinal obstruction [Unknown]
  - Incorrect route of drug administration [Unknown]
  - Asthenia [Unknown]
  - Pain [Unknown]
  - Diarrhoea [Unknown]
  - Vomiting [Unknown]
  - Muscle spasms [Unknown]
  - Influenza like illness [Unknown]
  - Myocardial infarction [Unknown]

NARRATIVE: CASE EVENT DATE: 201711
